FAERS Safety Report 5659340-0 (Version None)
Quarter: 2008Q1

REPORT INFORMATION
  Report Type: 
  Country: None (occurrence: None)
  Receive Date: 20080311
  Receipt Date: 20080228
  Transmission Date: 20080703
  Serious: Yes (Other)
  Sender: FDA-Public Use
  Company Number: HQWYE271307JUN04

PATIENT
  Sex: Female
  Weight: 113.5 kg

DRUGS (16)
  1. PREMPRO [Suspect]
     Indication: HORMONE REPLACEMENT THERAPY
     Dosage: UNKNOWN
  2. HYZAAR [Concomitant]
     Indication: HYPERTENSION
     Dosage: UNKNOWN
     Dates: start: 20040501
  3. POTASSIUM CHLORIDE [Concomitant]
     Indication: BLOOD POTASSIUM DECREASED
     Dosage: UNKNOWN
  4. TOPAMAX [Concomitant]
     Indication: MUSCULOSKELETAL STIFFNESS
     Dosage: UNKNOWN
     Dates: start: 20040501
  5. MOBIC [Concomitant]
     Indication: ARTHROPATHY
     Dosage: AS NEEDED, CHANGES FREQUENTLY
  6. ULTRACET [Concomitant]
     Indication: PAIN
     Dosage: UNKNOWN
     Dates: start: 20020102
  7. NEURONTIN [Concomitant]
     Indication: MUSCULOSKELETAL STIFFNESS
     Dosage: UNKNOWN
  8. VERAPAMIL [Concomitant]
     Indication: HYPERTENSION
     Dosage: UNKNOWN
  9. CELEBREX [Concomitant]
     Dosage: ^OFF AND ON^
  10. CARAFATE [Concomitant]
     Indication: STOMACH DISCOMFORT
     Dosage: UNKNOWN
  11. BEXTRA [Concomitant]
     Dosage: UNKNOWN
  12. CARISOPRODOL [Concomitant]
     Dosage: UNKNOWN
     Dates: start: 20030615
  13. NAPRELAN [Concomitant]
     Indication: MUSCULOSKELETAL STIFFNESS
     Dosage: UNKNOWN
  14. DEMADEX [Concomitant]
     Indication: FLUID RETENTION
     Dosage: ^OFF AND ON^
  15. VIOXX [Concomitant]
     Dosage: ^OFF AND ON^
  16. PRILOSEC [Concomitant]
     Indication: DYSPEPSIA
     Dosage: UNKNOWN
     Dates: start: 20020102

REACTIONS (3)
  - RAYNAUD'S PHENOMENON [None]
  - SJOGREN'S SYNDROME [None]
  - SYSTEMIC LUPUS ERYTHEMATOSUS [None]
